FAERS Safety Report 7164621-8 (Version None)
Quarter: 2010Q4

REPORT INFORMATION
  Report Type: 
  Country: None (occurrence: None)
  Receive Date: 20101215
  Receipt Date: 20101201
  Transmission Date: 20110411
  Serious: Yes (Death)
  Sender: FDA-Public Use
  Company Number: RS-GENENTECH-310228

PATIENT
  Sex: Female

DRUGS (3)
  1. RITUXIMAB [Suspect]
     Indication: RHEUMATOID ARTHRITIS
     Dosage: 1000 MG, Q2W
     Route: 042
     Dates: start: 20090728, end: 20090812
  2. METHOTREXATE [Concomitant]
     Indication: RHEUMATOID ARTHRITIS
     Dosage: 10 MG, 1/WEEK
     Route: 048
     Dates: start: 20031001, end: 20100122
  3. OMEPROL [Concomitant]
     Indication: PROPHYLAXIS
     Dosage: 20 MG, QAM
     Route: 048
     Dates: start: 20031001, end: 20100122

REACTIONS (1)
  - LUNG NEOPLASM [None]
